FAERS Safety Report 18938323 (Version 1)
Quarter: 2021Q1

REPORT INFORMATION
  Report Type: Spontaneous
  Country: US (occurrence: US)
  Receive Date: 20210224
  Receipt Date: 20210224
  Transmission Date: 20210420
  Serious: No
  Sender: FDA-Public Use
  Company Number: None

PATIENT
  Age: 64 Year
  Sex: Male
  Weight: 71 kg

DRUGS (1)
  1. BUPROPION (BUPROPION HCL 150MG 12HR TABS, SA) [Suspect]
     Active Substance: BUPROPION HYDROCHLORIDE
     Indication: SMOKING CESSATION THERAPY
     Route: 048
     Dates: start: 20201110, end: 20201229

REACTIONS (5)
  - Cold sweat [None]
  - Diarrhoea [None]
  - Drug screen positive [None]
  - Hypotension [None]
  - Hyponatraemia [None]

NARRATIVE: CASE EVENT DATE: 20201226
